FAERS Safety Report 8722695 (Version 2)
Quarter: 2015Q3

REPORT INFORMATION
  Report Type: Report from Study
  Country: US (occurrence: US)
  Receive Date: 20120814
  Receipt Date: 20150803
  Transmission Date: 20151125
  Serious: Yes (Death, Hospitalization)
  Sender: FDA-Public Use
  Company Number: US-ROCHE-1099909

PATIENT
  Age: 62 Year
  Sex: Female

DRUGS (14)
  1. LIDOCAINE. [Concomitant]
     Active Substance: LIDOCAINE
     Route: 040
  2. LIDOCAINE. [Concomitant]
     Active Substance: LIDOCAINE
     Route: 040
  3. ATROPINE. [Concomitant]
     Active Substance: ATROPINE
     Route: 042
  4. PRONESTYL [Concomitant]
     Active Substance: PROCAINAMIDE HYDROCHLORIDE
     Route: 065
  5. ACTIVASE [Suspect]
     Active Substance: ALTEPLASE
     Indication: ACUTE MYOCARDIAL INFARCTION
     Route: 041
  6. ACTIVASE [Suspect]
     Active Substance: ALTEPLASE
     Indication: HYPOTENSION
  7. CALCIUM CHLORIDE. [Concomitant]
     Active Substance: CALCIUM CHLORIDE
     Route: 042
  8. SODIUM BICARBONATE. [Concomitant]
     Active Substance: SODIUM BICARBONATE
     Route: 042
  9. ADRENALINE [Concomitant]
     Active Substance: EPINEPHRINE
     Route: 042
  10. XYLOCAINE [Concomitant]
     Active Substance: LIDOCAINE HYDROCHLORIDE
     Route: 042
  11. EPINEPHRINE. [Concomitant]
     Active Substance: EPINEPHRINE
     Route: 042
  12. MORPHINE SULPHATE DRIP [Concomitant]
     Route: 042
  13. ACTIVASE [Suspect]
     Active Substance: ALTEPLASE
     Indication: ATRIOVENTRICULAR BLOCK COMPLETE
     Route: 041
  14. ACTIVASE [Suspect]
     Active Substance: ALTEPLASE
     Indication: VENTRICULAR TACHYCARDIA
     Dosage: TWO VIALS OF 50 MG
     Route: 041

REACTIONS (4)
  - Death [Fatal]
  - Back pain [Unknown]
  - Vomiting [Unknown]
  - Ventricular tachycardia [Unknown]

NARRATIVE: CASE EVENT DATE: 19881004
